FAERS Safety Report 18171756 (Version 4)
Quarter: 2021Q3

REPORT INFORMATION
  Report Type: Report from Study
  Country: US (occurrence: US)
  Receive Date: 20200819
  Receipt Date: 20210713
  Transmission Date: 20211014
  Serious: Yes (Hospitalization, Other)
  Sender: FDA-Public Use
  Company Number: US-AEGERION PHARMACEUTICAL, INC-AEGR004872

PATIENT
  Sex: Female
  Weight: 60.77 kg

DRUGS (1)
  1. JUXTAPID [Suspect]
     Active Substance: LOMITAPIDE MESYLATE
     Indication: TYPE IIA HYPERLIPIDAEMIA
     Dosage: 30 MILLIGRAM, QD AT BEDTIME
     Route: 048
     Dates: start: 20131011

REACTIONS (9)
  - Stress [Recovering/Resolving]
  - Decreased appetite [Recovering/Resolving]
  - Eye operation [Unknown]
  - Depression [Unknown]
  - Sleep disorder [Recovering/Resolving]
  - Glaucoma [Recovering/Resolving]
  - Alopecia [Recovering/Resolving]
  - Weight decreased [Recovered/Resolved]
  - Diet noncompliance [Unknown]

NARRATIVE: CASE EVENT DATE: 2020
